FAERS Safety Report 5901591-1 (Version None)
Quarter: 2008Q3

REPORT INFORMATION
  Report Type: 
  Country: None (occurrence: None)
  Receive Date: 20080926
  Receipt Date: 20080926
  Transmission Date: 20090109
  Serious: Yes (Other)
  Sender: FDA-Public Use
  Company Number: None

PATIENT
  Sex: Male
  Weight: 129.2752 kg

DRUGS (3)
  1. CLONAZEPAM [Suspect]
     Indication: CIRCADIAN RHYTHM SLEEP DISORDER
     Dosage: 2 MG BID PO  : 40 MG QD PO
     Route: 048
     Dates: start: 20080920, end: 20080923
  2. CLONAZEPAM [Suspect]
     Indication: GENERALISED ANXIETY DISORDER
     Dosage: 2 MG BID PO  : 40 MG QD PO
     Route: 048
     Dates: start: 20080920, end: 20080923
  3. CLONAZEPAM [Suspect]
     Indication: PANIC ATTACK
     Dosage: 2 MG BID PO  : 40 MG QD PO
     Route: 048
     Dates: start: 20080920, end: 20080923

REACTIONS (7)
  - ANXIETY [None]
  - DRUG INEFFECTIVE [None]
  - FATIGUE [None]
  - INCORRECT DOSE ADMINISTERED [None]
  - INITIAL INSOMNIA [None]
  - PANIC ATTACK [None]
  - THERAPEUTIC RESPONSE UNEXPECTED WITH DRUG SUBSTITUTION [None]
